FAERS Safety Report 4433096-1 (Version None)
Quarter: 2004Q3

REPORT INFORMATION
  Report Type: 
  Country: None (occurrence: None)
  Receive Date: 20040823
  Receipt Date: 20040812
  Transmission Date: 20050211
  Serious: Yes (Hospitalization)
  Sender: FDA-Public Use
  Company Number: US-2004-030038

PATIENT
  Age: 64 Year
  Sex: Female
  Weight: 46.3 kg

DRUGS (9)
  1. CAMPATH [Suspect]
     Indication: CHRONIC LYMPHOCYTIC LEUKAEMIA
     Dosage: SEE IMAGE
     Dates: start: 20040615, end: 20040601
  2. CAMPATH [Suspect]
     Indication: CHRONIC LYMPHOCYTIC LEUKAEMIA
     Dosage: SEE IMAGE
     Dates: start: 20040601, end: 20040727
  3. COUMADIN [Concomitant]
  4. LASIX [Concomitant]
  5. FAMVIR [Concomitant]
  6. BACTRIM [Concomitant]
  7. FOSAMAX [Concomitant]
  8. HYDROCHLOROTHIAZIDE [Concomitant]
  9. LOPRESSOR [Concomitant]

REACTIONS (14)
  - ALKALOSIS [None]
  - ARRHYTHMIA [None]
  - BLOOD ALBUMIN DECREASED [None]
  - BLOOD LACTATE DEHYDROGENASE INCREASED [None]
  - CARDIAC FAILURE CONGESTIVE [None]
  - DYSPNOEA EXERTIONAL [None]
  - ELECTROCARDIOGRAM ST SEGMENT ABNORMAL [None]
  - HAEMOGLOBIN DECREASED [None]
  - HYPONATRAEMIA [None]
  - INAPPROPRIATE ANTIDIURETIC HORMONE SECRETION [None]
  - INTERNATIONAL NORMALISED RATIO INCREASED [None]
  - ORAL CANDIDIASIS [None]
  - PERICARDIAL EFFUSION [None]
  - WEIGHT INCREASED [None]
